FAERS Safety Report 4847890-6 (Version None)
Quarter: 2005Q4

REPORT INFORMATION
  Report Type: 
  Country: None (occurrence: None)
  Receive Date: 20051206
  Receipt Date: 20051123
  Transmission Date: 20060501
  Serious: Yes (Other)
  Sender: FDA-Public Use
  Company Number: 2005160557

PATIENT
  Age: 58 Year
  Sex: Male
  Weight: 105.2345 kg

DRUGS (13)
  1. VIAGRA [Suspect]
     Indication: ERECTILE DYSFUNCTION
     Dosage: 100 MG, AS NECESSARY, ORAL
     Route: 048
     Dates: start: 19980101
  2. LISINOPRIL [Concomitant]
  3. POTASSIUM (POTASSIUM) [Concomitant]
  4. ASPIRIN [Concomitant]
  5. METOPROLOL (METOPROLOL) [Concomitant]
  6. DOXAZOSIN MESYLATE [Concomitant]
  7. RANITIDINE HYDROCHLORIDE [Concomitant]
  8. SPIRONALACTONE (SPIRONOLACTONE) [Concomitant]
  9. OMEPRAZOLE [Concomitant]
  10. ZOCOR [Concomitant]
  11. FUROSEMIDE [Concomitant]
  12. GLIPIZIDE [Concomitant]
  13. INSULIN [Concomitant]

REACTIONS (5)
  - DRUG INEFFECTIVE [None]
  - HYPOAESTHESIA [None]
  - MUSCLE SPASMS [None]
  - POOR PERIPHERAL CIRCULATION [None]
  - TRIPLE VESSEL BYPASS GRAFT [None]
